FAERS Safety Report 5908219-5 (Version None)
Quarter: 2008Q4

REPORT INFORMATION
  Report Type: 
  Country: None (occurrence: None)
  Receive Date: 20081006
  Receipt Date: 20080924
  Transmission Date: 20090506
  Serious: Yes (Other)
  Sender: FDA-Public Use
  Company Number: JP-JNJFOC-20080803264

PATIENT
  Sex: Female
  Weight: 45 kg

DRUGS (11)
  1. DUROTEP [Suspect]
     Indication: CANCER PAIN
     Route: 062
  2. DEPAS [Suspect]
     Indication: ANXIOLYTIC THERAPY
     Route: 048
  3. TEGRETOL [Suspect]
     Indication: HYPOAESTHESIA
     Route: 048
  4. TEGRETOL [Suspect]
     Indication: PAIN
     Route: 048
  5. METHOTREXATE SODIUM [Suspect]
     Indication: BREAST CANCER
     Route: 042
  6. ONCOVIN [Suspect]
     Indication: BREAST CANCER
     Route: 042
  7. ENDOXAN [Suspect]
     Indication: BREAST CANCER
     Route: 042
  8. LENDORMIN [Concomitant]
     Indication: INSOMNIA
     Route: 048
  9. MAGNESIUM OXIDE [Concomitant]
     Indication: CONSTIPATION
     Route: 048
  10. MOHRUS TAPE [Concomitant]
     Indication: PAIN
     Route: 062
  11. HERCEPTIN [Concomitant]
     Indication: BREAST CANCER
     Route: 042

REACTIONS (1)
  - STEVENS-JOHNSON SYNDROME [None]
